FAERS Safety Report 6537447-3 (Version None)
Quarter: 2010Q1

REPORT INFORMATION
  Report Type: 
  Country: None (occurrence: None)
  Receive Date: 20100110
  Receipt Date: 20091215
  Transmission Date: 20100710
  Serious: Yes (Hospitalization)
  Sender: FDA-Public Use
  Company Number: 464702

PATIENT
  Age: 69 Year
  Sex: Male

DRUGS (4)
  1. IRINOTECAN HCL [Suspect]
     Indication: COLORECTAL CANCER
     Dosage: 360 MG, UNKNOWN, INTRAVENOUS
     Route: 042
     Dates: start: 20090113, end: 20090325
  2. LEUCOVORIN CALCIUM [Suspect]
     Indication: COLORECTAL CANCER
     Dosage: 800 MG, UNKNOWN, INTRAVENOUS
     Route: 042
     Dates: start: 20090113, end: 20090325
  3. FLUOROURACIL [Suspect]
     Indication: COLORECTAL CANCER
     Dosage: 4.8 G, UNKNOWN, INTRAVENOUS
     Route: 042
     Dates: start: 20090113, end: 20090325
  4. BEVACIZUMAB [Suspect]
     Indication: COLORECTAL CANCER
     Dosage: 460 MG, UNKNOWN, INTRAVENOUS
     Route: 042
     Dates: start: 20090113, end: 20090325

REACTIONS (1)
  - PULMONARY EMBOLISM [None]
